FAERS Safety Report 7444919-6 (Version None)
Quarter: 2011Q2

REPORT INFORMATION
  Report Type: 
  Country: None (occurrence: None)
  Receive Date: 20110429
  Receipt Date: 20110426
  Transmission Date: 20111010
  Serious: Yes (Hospitalization)
  Sender: FDA-Public Use
  Company Number: US-BRISTOL-MYERS SQUIBB COMPANY-15689417

PATIENT
  Age: 62 Year
  Sex: Female

DRUGS (6)
  1. SAXAGLIPTIN [Suspect]
  2. INSULIN [Suspect]
  3. HYDROCHLOROTHIAZIDE [Suspect]
  4. METFORMIN HCL [Suspect]
  5. VALSARTAN [Suspect]
  6. SIMVASTATIN [Suspect]

REACTIONS (1)
  - RENAL FAILURE ACUTE [None]
